FAERS Safety Report 4779932-0 (Version None)
Quarter: 2005Q3

REPORT INFORMATION
  Report Type: 
  Country: None (occurrence: None)
  Receive Date: 20050927
  Receipt Date: 20050819
  Transmission Date: 20060218
  Serious: Yes (Death, Other)
  Sender: FDA-Public Use
  Company Number: US-GLAXOSMITHKLINE-A0570961A

PATIENT
  Age: 58 Year
  Sex: Female
  Weight: 54.1 kg

DRUGS (10)
  1. WELLBUTRIN [Suspect]
     Indication: PAIN MANAGEMENT
     Dosage: 150MG PER DAY
     Route: 048
     Dates: start: 20050101
  2. HYDROCODONE [Concomitant]
  3. DIAZEPAM [Concomitant]
     Dosage: 5MG THREE TIMES PER DAY
  4. ENDOCET [Concomitant]
     Route: 048
  5. PREVACID [Concomitant]
     Dosage: 30MG TWICE PER DAY
  6. OMEPRAZOLE [Concomitant]
  7. SKELAXIN [Concomitant]
  8. TRAZODONE [Concomitant]
     Dosage: 50MG AT NIGHT
  9. PREMARIN [Concomitant]
     Dosage: .625MG PER DAY
  10. AMBIEN [Concomitant]

REACTIONS (8)
  - AORTIC ATHEROSCLEROSIS [None]
  - ASPIRATION [None]
  - BREAST CANCER [None]
  - CHOLELITHIASIS [None]
  - HEAD INJURY [None]
  - MURDER [None]
  - PULMONARY CONGESTION [None]
  - PULMONARY OEDEMA [None]
